FAERS Safety Report 15593543 (Version 1)
Quarter: 2018Q4

REPORT INFORMATION
  Report Type: Spontaneous
  Country: US (occurrence: US)
  Receive Date: 20181107
  Receipt Date: 20181107
  Transmission Date: 20190205
  Serious: No
  Sender: FDA-Public Use
  Company Number: US-OTSUKA-2018_017234

PATIENT
  Age: 55 Year
  Sex: Male

DRUGS (1)
  1. NUEDEXTA [Suspect]
     Active Substance: DEXTROMETHORPHAN HYDROBROMIDE\QUINIDINE SULFATE
     Indication: FRONTOTEMPORAL DEMENTIA
     Dosage: 1 DF, BID
     Route: 065

REACTIONS (1)
  - Drug effective for unapproved indication [Unknown]
